FAERS Safety Report 6713264-6 (Version None)
Quarter: 2010Q2

REPORT INFORMATION
  Report Type: 
  Country: None (occurrence: None)
  Receive Date: 20100506
  Receipt Date: 20100427
  Transmission Date: 20101027
  Serious: Yes (Hospitalization)
  Sender: FDA-Public Use
  Company Number: DE-BAYER-201023779GPV

PATIENT
  Age: 71 Year
  Sex: Male

DRUGS (13)
  1. ALEMTUZUMAB [Suspect]
     Indication: T-CELL LYMPHOMA
     Dosage: DAY 1 AND 2 OF CHOP REGIMEN
     Route: 058
     Dates: start: 20091209, end: 20100112
  2. PREDNISONE TAB [Suspect]
     Indication: T-CELL LYMPHOMA
     Dosage: DAY 1-5
     Route: 048
     Dates: start: 20091127, end: 20100217
  3. CYCLOPHOSPHAMIDE [Suspect]
     Indication: T-CELL LYMPHOMA
     Dosage: DAY ONE
     Route: 042
     Dates: start: 20091207, end: 20100217
  4. DOXORUBICIN HCL [Suspect]
     Indication: T-CELL LYMPHOMA
     Dosage: DAY 1
     Route: 042
     Dates: start: 20091207, end: 20100217
  5. VINCRISTINE [Suspect]
     Indication: T-CELL LYMPHOMA
     Dosage: DAY 1
     Route: 042
     Dates: start: 20091126, end: 20100217
  6. PEGFILGRASTIM [Suspect]
     Indication: T-CELL LYMPHOMA
     Route: 058
     Dates: start: 20100219, end: 20100219
  7. TORASEMIDE [Concomitant]
     Indication: HYPERTENSION
     Route: 048
     Dates: start: 20100204
  8. PANTOPRAZOL-NATRIUM [Concomitant]
     Indication: PROPHYLAXIS AGAINST GASTROINTESTINAL ULCER
     Route: 048
     Dates: start: 20091127
  9. TRIMETHOPRIM/SULFAMETHOXAZOL [Concomitant]
     Indication: INFECTION PROPHYLAXIS
     Dosage: 160/80 MG
     Route: 048
     Dates: start: 20091202
  10. ENOXAPARIN SODIUM [Concomitant]
     Indication: ATRIAL FIBRILLATION
     Route: 058
     Dates: start: 20100209
  11. ACETYLSALICYLACID [Concomitant]
     Indication: ATRIAL FIBRILLATION
     Route: 048
     Dates: start: 20091230
  12. VALGANCICLOVIR HCL [Concomitant]
     Indication: CYTOMEGALOVIRUS INFECTION
     Route: 048
     Dates: start: 20100209
  13. BISOPROLOL [Concomitant]
     Indication: CARDIAC FAILURE
     Route: 048
     Dates: start: 20100301

REACTIONS (2)
  - CHEST PAIN [None]
  - PLEURAL EFFUSION [None]
